FAERS Safety Report 9562593 (Version 1)
Quarter: 2013Q3

REPORT INFORMATION
  Report Type: Spontaneous
  Country: US (occurrence: US)
  Receive Date: 20130927
  Receipt Date: 20130927
  Transmission Date: 20140515
  Serious: Yes (Other)
  Sender: FDA-Public Use
  Company Number: US-SANOFI-AVENTIS-2013SA093916

PATIENT
  Age: 66 Year
  Sex: Male

DRUGS (4)
  1. AFLIBERCEPT [Suspect]
     Indication: COLORECTAL CANCER METASTATIC
     Dosage: 2 DOSES
     Route: 065
  2. FOLINIC ACID [Concomitant]
     Indication: COLORECTAL CANCER METASTATIC
  3. FLUOROURACIL [Concomitant]
     Indication: COLORECTAL CANCER METASTATIC
  4. IRINOTECAN [Concomitant]
     Indication: COLORECTAL CANCER METASTATIC

REACTIONS (5)
  - Cardiomyopathy [Recovered/Resolved]
  - Dyspnoea [Recovered/Resolved]
  - Fatigue [Recovered/Resolved]
  - Cardiac failure congestive [Recovered/Resolved]
  - Left ventricular dysfunction [Recovered/Resolved]
